FAERS Safety Report 21694743 (Version 2)
Quarter: 2022Q4

REPORT INFORMATION
  Report Type: Spontaneous
  Country: JP (occurrence: JP)
  Receive Date: 20221207
  Receipt Date: 20221216
  Transmission Date: 20230112
  Serious: No
  Sender: FDA-Public Use
  Company Number: JP-ASTELLAS-2022JP017512

PATIENT
  Sex: Male

DRUGS (2)
  1. FIDAXOMICIN [Suspect]
     Active Substance: FIDAXOMICIN
     Indication: Clostridium difficile colitis
     Dosage: 200 MILLIGRAM
     Route: 048
     Dates: start: 20221121, end: 20221201
  2. FIDAXOMICIN [Suspect]
     Active Substance: FIDAXOMICIN
     Dosage: 200 UNK

REACTIONS (2)
  - Stomatitis [Unknown]
  - Wrong technique in product usage process [Unknown]
